FAERS Safety Report 9382251 (Version 1)
Quarter: 2013Q3

REPORT INFORMATION
  Report Type: Spontaneous
  Country: US (occurrence: None)
  Receive Date: 20130702
  Receipt Date: 20130702
  Transmission Date: 20140515
  Serious: Yes (Other)
  Sender: FDA-Public Use
  Company Number: None

PATIENT
  Age: 72 Year
  Sex: Male

DRUGS (1)
  1. EYLEA [Suspect]
     Indication: MACULAR DEGENERATION
     Dosage: INTRAVITREAL INJECTION (8)
     Dates: start: 20120820, end: 20130603

REACTIONS (4)
  - Pain [None]
  - Visual acuity reduced [None]
  - Lacrimation increased [None]
  - Intraocular pressure increased [None]
